FAERS Safety Report 16752588 (Version 1)
Quarter: 2019Q3

REPORT INFORMATION
  Report Type: Report from Study
  Country: US (occurrence: US)
  Receive Date: 20190828
  Receipt Date: 20190828
  Transmission Date: 20191005
  Serious: Yes (Other)
  Sender: FDA-Public Use
  Company Number: US-AMGEN-USASL2019135782

PATIENT
  Age: 50 Year
  Sex: Female

DRUGS (1)
  1. AIMOVIG [Suspect]
     Active Substance: ERENUMAB-AOOE
     Indication: MIGRAINE
     Dosage: 140 UNK, 28
     Route: 065

REACTIONS (6)
  - Swollen tongue [Unknown]
  - Peripheral swelling [Unknown]
  - Contusion [Unknown]
  - Swelling face [Unknown]
  - Rash macular [Unknown]
  - Rash [Unknown]
